FAERS Safety Report 25541958 (Version 1)
Quarter: 2025Q3

REPORT INFORMATION
  Report Type: Spontaneous
  Country: US (occurrence: US)
  Receive Date: 20250711
  Receipt Date: 20250711
  Transmission Date: 20251020
  Serious: No
  Sender: TARO
  Company Number: US-TARO PHARMACEUTICALS USA INC.-2024TAR02847

PATIENT

DRUGS (1)
  1. CLOBETASOL PROPIONATE [Suspect]
     Active Substance: CLOBETASOL PROPIONATE
     Indication: Rash
     Dosage: OD, PUT SOME IN THE PALM OF MY HAND AND RUBBED THEM TOGETHER AND PUT IT ON MY STOMACH AND BACK. I MI
     Route: 061
     Dates: start: 20241218

REACTIONS (5)
  - Insomnia [Recovering/Resolving]
  - Burning sensation [Recovering/Resolving]
  - Pain of skin [Recovering/Resolving]
  - Pruritus [Recovering/Resolving]
  - Erythema [Recovering/Resolving]
